FAERS Safety Report 8965595 (Version 1)
Quarter: 2012Q4

REPORT INFORMATION
  Report Type: Spontaneous
  Country: US (occurrence: None)
  Receive Date: 20121212
  Receipt Date: 20121212
  Transmission Date: 20130627
  Serious: Yes (Hospitalization)
  Sender: FDA-Public Use
  Company Number: None

PATIENT
  Age: 46 Year
  Sex: Female
  Weight: 133.81 kg

DRUGS (1)
  1. METOCLOPRAMIDE [Suspect]

REACTIONS (3)
  - Muscle spasms [None]
  - Convulsion [None]
  - Product substitution issue [None]
